FAERS Safety Report 14107007 (Version 1)
Quarter: 2017Q4

REPORT INFORMATION
  Report Type: Spontaneous
  Country: US (occurrence: US)
  Receive Date: 20171019
  Receipt Date: 20171019
  Transmission Date: 20180321
  Serious: No
  Sender: FDA-Public Use
  Company Number: US-LANNETT COMPANY, INC.-US-2017LAN000591

PATIENT

DRUGS (2)
  1. LEVOTHYROXINE SODIUM. [Suspect]
     Active Substance: LEVOTHYROXINE SODIUM
     Indication: HYPOTHYROIDISM
     Dosage: 25 MCG, UNK
     Dates: start: 201606, end: 201611
  2. LEVOTHYROXINE SODIUM. [Suspect]
     Active Substance: LEVOTHYROXINE SODIUM
     Dosage: 25 MCG, UNK
     Dates: start: 201701

REACTIONS (6)
  - Frequent bowel movements [Unknown]
  - Nausea [Unknown]
  - Nervousness [Unknown]
  - Gastrooesophageal reflux disease [Unknown]
  - Tremor [Unknown]
  - Agitation [Unknown]

NARRATIVE: CASE EVENT DATE: 2016
